FAERS Safety Report 10051437 (Version 2)
Quarter: 2014Q2

REPORT INFORMATION
  Report Type: Spontaneous
  Country: US (occurrence: US)
  Receive Date: 20140401
  Receipt Date: 20140523
  Transmission Date: 20141212
  Serious: No
  Sender: FDA-Public Use
  Company Number: US-PFIZER INC-2014090363

PATIENT
  Age: 59 Year
  Sex: Female
  Weight: 83 kg

DRUGS (1)
  1. LEVOTHYROXINE SODIUM [Suspect]
     Indication: HYPOTHYROIDISM
     Dosage: 88 UG, 1X/DAY

REACTIONS (3)
  - Palpitations [Unknown]
  - Alopecia [Unknown]
  - Drug ineffective [Unknown]
